FAERS Safety Report 10108952 (Version 2)
Quarter: 2014Q2

REPORT INFORMATION
  Report Type: Spontaneous
  Country: US (occurrence: US)
  Receive Date: 20140425
  Receipt Date: 20140512
  Transmission Date: 20141212
  Serious: Yes (Hospitalization)
  Sender: FDA-Public Use
  Company Number: US-JNJFOC-20140410728

PATIENT
  Sex: Male

DRUGS (1)
  1. INVEGA SUSTENNA [Suspect]
     Indication: PRODUCT USED FOR UNKNOWN INDICATION
     Route: 030
     Dates: start: 2014, end: 2014

REACTIONS (4)
  - Investigation [Not Recovered/Not Resolved]
  - Imprisonment [Unknown]
  - Drug ineffective [Unknown]
  - Drug dose omission [Unknown]
